FAERS Safety Report 7589492-7 (Version None)
Quarter: 2011Q3

REPORT INFORMATION
  Report Type: 
  Country: None (occurrence: None)
  Receive Date: 20110705
  Receipt Date: 20110620
  Transmission Date: 20111222
  Serious: Yes (Hospitalization, Other)
  Sender: FDA-Public Use
  Company Number: FR-ROCHE-785186

PATIENT
  Sex: Female

DRUGS (2)
  1. ACCUTANE [Suspect]
     Dosage: DOSE INCREASE
     Route: 065
  2. ACCUTANE [Suspect]
     Indication: ACNE
     Dosage: (UNPRECISED DOSE)
     Route: 065
     Dates: start: 20010601

REACTIONS (5)
  - DELUSION [None]
  - PERSONALITY DISORDER [None]
  - FATIGUE [None]
  - FAECES DISCOLOURED [None]
  - DEPRESSION [None]
